FAERS Safety Report 5365523-X (Version None)
Quarter: 2007Q2

REPORT INFORMATION
  Report Type: 
  Country: None (occurrence: None)
  Receive Date: 20070621
  Receipt Date: 20070618
  Transmission Date: 20071010
  Serious: Yes (Other)
  Sender: FDA-Public Use
  Company Number: A0657206A

PATIENT
  Sex: Male

DRUGS (2)
  1. AVANDAMET [Suspect]
     Route: 048
  2. UNKNOWN [Concomitant]

REACTIONS (1)
  - INTENTIONAL OVERDOSE [None]
